FAERS Safety Report 8160420-9 (Version None)
Quarter: 2012Q1

REPORT INFORMATION
  Report Type: 
  Country: None (occurrence: None)
  Receive Date: 20120223
  Receipt Date: 20120220
  Transmission Date: 20120608
  Serious: Yes (Death, Other)
  Sender: FDA-Public Use
  Company Number: US-ELI_LILLY_AND_COMPANY-US_031198621

PATIENT
  Age: 45 Year
  Sex: Female

DRUGS (10)
  1. VITAMIN K TAB [Concomitant]
  2. PROMETHAZINE [Concomitant]
  3. LEVOFLOXACIN [Concomitant]
  4. METYLPREDNISOLON SOLUBILE [Concomitant]
  5. CARBOPLATIN [Concomitant]
     Indication: BREAST CANCER RECURRENT
     Dosage: 450 MG, OTHER
  6. ARIMIDEX [Concomitant]
     Dosage: 1 MG, UNKNOWN
  7. ESOMEPRAZOLE [Concomitant]
  8. OXYCODONE HCL [Concomitant]
  9. GEMCITABINE HYDROCHLORIDE [Suspect]
     Indication: BREAST CANCER RECURRENT
     Dosage: 1300 MG, OTHER
     Route: 042
  10. MS CONTIN [Concomitant]
     Indication: BACK PAIN
     Dosage: 15 MG, UNKNOWN

REACTIONS (8)
  - COMA HEPATIC [None]
  - VOMITING [None]
  - METASTASES TO BONE [None]
  - THROMBOCYTOPENIA [None]
  - PLEURAL EFFUSION [None]
  - NAUSEA [None]
  - METASTASES TO LIVER [None]
  - FATIGUE [None]
